FAERS Safety Report 16871755 (Version 1)
Quarter: 2019Q4

REPORT INFORMATION
  Report Type: Report from Study
  Country: BR (occurrence: BR)
  Receive Date: 20191001
  Receipt Date: 20191001
  Transmission Date: 20200122
  Serious: Yes (Other)
  Sender: FDA-Public Use
  Company Number: BR-TEVA-2019-BR-1115307

PATIENT
  Age: 32 Year
  Sex: Female

DRUGS (7)
  1. MARATUS [Concomitant]
     Dosage: (BRAND WAS NOT FOUND)
  2. PURAN [Concomitant]
     Active Substance: LEVOTHYROXINE SODIUM
  3. COPAXONE [Suspect]
     Active Substance: GLATIRAMER ACETATE
     Indication: RELAPSING-REMITTING MULTIPLE SCLEROSIS
     Dates: start: 19861124
  4. QUETIAPINE. [Concomitant]
     Active Substance: QUETIAPINE
  5. NEOZINE [Concomitant]
     Active Substance: LEVOMEPROMAZINE
  6. CARBOLITHIUM [Concomitant]
     Active Substance: LITHIUM CARBONATE
  7. L?PTICO [Concomitant]

REACTIONS (7)
  - Injection site pain [Not Recovered/Not Resolved]
  - Injection site nodule [Not Recovered/Not Resolved]
  - Injection site atrophy [Not Recovered/Not Resolved]
  - Injection site necrosis [Not Recovered/Not Resolved]
  - Injection site discolouration [Not Recovered/Not Resolved]
  - Injection site erythema [Not Recovered/Not Resolved]
  - Injection site haematoma [Not Recovered/Not Resolved]

NARRATIVE: CASE EVENT DATE: 201909
